FAERS Safety Report 7486503-4 (Version None)
Quarter: 2011Q2

REPORT INFORMATION
  Report Type: 
  Country: None (occurrence: None)
  Receive Date: 20110517
  Receipt Date: 20110510
  Transmission Date: 20111010
  Serious: Yes (Other)
  Sender: FDA-Public Use
  Company Number: JP-PFIZER INC-2011100387

PATIENT
  Age: 45 Year
  Sex: Female

DRUGS (3)
  1. CISPLATIN [Concomitant]
     Dosage: 50 MG/BODY, 5 COURSES
     Dates: start: 19940801
  2. EPIRUBICIN HYDROCHLORIDE [Suspect]
     Indication: BLADDER CANCER
     Dosage: 20 MG/BODY, 3 COURSES
     Route: 042
     Dates: end: 19940701
  3. CISPLATIN [Concomitant]
     Indication: BLADDER CANCER
     Dosage: 50 MG/BODY, 3 COURSES
     Dates: end: 19940701

REACTIONS (1)
  - CONTRACTED BLADDER [None]
